FAERS Safety Report 4788644-9 (Version None)
Quarter: 2005Q4

REPORT INFORMATION
  Report Type: 
  Country: None (occurrence: None)
  Receive Date: 20051005
  Receipt Date: 20050926
  Transmission Date: 20060501
  Serious: Yes (Life-Threatening, Hospitalization)
  Sender: FDA-Public Use
  Company Number: FR-GLAXOSMITHKLINE-B0395093A

PATIENT
  Age: 53 Year
  Sex: Male

DRUGS (6)
  1. EPIVIR [Suspect]
     Indication: ACQUIRED IMMUNODEFICIENCY SYNDROME
     Dosage: 300MG PER DAY
     Route: 048
     Dates: start: 20050117, end: 20050817
  2. ZERIT [Suspect]
     Indication: ACQUIRED IMMUNODEFICIENCY SYNDROME
     Dosage: 1UNIT PER DAY
     Route: 048
     Dates: start: 20050427, end: 20050817
  3. DEPAKENE [Suspect]
     Indication: CONVULSION
     Dosage: 2UNIT PER DAY
     Route: 048
     Dates: start: 20050117, end: 20050820
  4. KALETRA [Concomitant]
     Indication: ACQUIRED IMMUNODEFICIENCY SYNDROME
     Route: 065
     Dates: end: 20050816
  5. MALOCIDE [Concomitant]
     Indication: DRUG USE FOR UNKNOWN INDICATION
     Route: 065
     Dates: end: 20050816
  6. DALACINE [Concomitant]
     Indication: DRUG USE FOR UNKNOWN INDICATION
     Route: 065
     Dates: end: 20050816

REACTIONS (22)
  - ABDOMINAL PAIN [None]
  - ADRENAL INSUFFICIENCY [None]
  - ASTHENIA [None]
  - BLOOD ALKALINE PHOSPHATASE INCREASED [None]
  - CHOLESTASIS [None]
  - CONVULSION [None]
  - GENERAL PHYSICAL HEALTH DETERIORATION [None]
  - HEPATIC FAILURE [None]
  - HYPERKALAEMIA [None]
  - HYPERLACTACIDAEMIA [None]
  - HYPONATRAEMIA [None]
  - JAUNDICE [None]
  - MITOCHONDRIAL CYTOPATHY [None]
  - OBESITY [None]
  - OEDEMATOUS PANCREATITIS [None]
  - PANCREATITIS ACUTE [None]
  - PLEURAL EFFUSION [None]
  - RENAL FAILURE ACUTE [None]
  - SOMNOLENCE [None]
  - THROMBOCYTOPENIA [None]
  - TRANSAMINASES INCREASED [None]
  - WEIGHT DECREASED [None]
